FAERS Safety Report 22373708 (Version 1)
Quarter: 2023Q2

REPORT INFORMATION
  Report Type: Spontaneous
  Country: JP (occurrence: JP)
  Receive Date: 20230526
  Receipt Date: 20230526
  Transmission Date: 20230722
  Serious: Yes (Other)
  Sender: FDA-Public Use
  Company Number: JP-ABBVIE-21K-087-3911369-00

PATIENT
  Sex: Female

DRUGS (2)
  1. CARBIDOPA\LEVODOPA [Suspect]
     Active Substance: CARBIDOPA\LEVODOPA
     Indication: Parkinson^s disease
     Route: 050
     Dates: start: 20210430
  2. CARBIDOPA\LEVODOPA [Suspect]
     Active Substance: CARBIDOPA\LEVODOPA

REACTIONS (6)
  - Altered state of consciousness [Unknown]
  - Mobility decreased [Unknown]
  - Malaise [Unknown]
  - Dyskinesia [Unknown]
  - Stoma site extravasation [Unknown]
  - Device connection issue [Unknown]

NARRATIVE: CASE EVENT DATE: 20210101
